FAERS Safety Report 15994321 (Version 4)
Quarter: 2019Q2

REPORT INFORMATION
  Report Type: Report from Study
  Country: None (occurrence: BE)
  Receive Date: 20190222
  Receipt Date: 20190607
  Transmission Date: 20190711
  Serious: Yes (Death, Hospitalization, Other)
  Sender: FDA-Public Use
  Company Number: BE-ABBVIE-19S-013-2673383-00

PATIENT
  Age: 73 Year
  Sex: Male

DRUGS (11)
  1. KREDEX [Concomitant]
     Active Substance: CARVEDILOL
     Indication: PRODUCT USED FOR UNKNOWN INDICATION
  2. MIRAPEXIN [Concomitant]
     Active Substance: PRAMIPEXOLE
     Indication: PARKINSON^S DISEASE
     Route: 048
  3. DUODOPA [Suspect]
     Active Substance: CARBIDOPA\LEVODOPA
     Indication: PARKINSON^S DISEASE
     Dosage: MD=10ML;CD=5.9ML/HR DURING 16HRS;ED=5ML
     Route: 050
     Dates: start: 20160627, end: 20160630
  4. DUODOPA [Suspect]
     Active Substance: CARBIDOPA\LEVODOPA
     Dosage: MD=6ML;CD=3.6ML/HR DURING 16HRS;ED=3ML
     Route: 050
     Dates: start: 20180831
  5. DUODOPA [Suspect]
     Active Substance: CARBIDOPA\LEVODOPA
     Dosage: DOSES CONTINUOUSLY MONITORED AND ADAPTED
     Route: 050
     Dates: start: 20160630, end: 20180831
  6. PROLOPA 250 [Concomitant]
     Dosage: FORM STRENGTH: 200MG/50MG; RESCUE MEDICATION
  7. COVERSYL [Concomitant]
     Active Substance: PERINDOPRIL
     Indication: PRODUCT USED FOR UNKNOWN INDICATION
  8. ALDACTONE [Concomitant]
     Active Substance: SPIRONOLACTONE
     Indication: PRODUCT USED FOR UNKNOWN INDICATION
  9. PROLOPA 250 [Concomitant]
     Indication: PARKINSON^S DISEASE
     Dosage: FORM STRENGTH: 200MG/50MG; UNIT DOSE: 1 TABLET 3 TIMES A DAY, 0.5 TABLET 2 TIMES A DAY
     Route: 048
  10. MIRAPEXIN [Concomitant]
     Active Substance: PRAMIPEXOLE
     Dates: start: 20160713
  11. BURINEX [Concomitant]
     Active Substance: BUMETANIDE
     Indication: PRODUCT USED FOR UNKNOWN INDICATION

REACTIONS (6)
  - Hemiplegia [Unknown]
  - Death [Fatal]
  - Spinal fracture [Unknown]
  - Fall [Recovered/Resolved]
  - Sensory loss [Unknown]
  - Dyspnoea [Recovering/Resolving]

NARRATIVE: CASE EVENT DATE: 20190214
